FAERS Safety Report 23848991 (Version 1)
Quarter: 2024Q2

REPORT INFORMATION
  Report Type: Spontaneous
  Country: US (occurrence: None)
  Receive Date: 20240511
  Receipt Date: 20240511
  Transmission Date: 20240716
  Serious: Yes (Hospitalization)
  Sender: FDA-Public Use
  Company Number: None

PATIENT
  Age: 39 Year
  Sex: Male
  Weight: 77 kg

DRUGS (1)
  1. NIRMATRELVIR\RITONAVIR [Suspect]
     Active Substance: NIRMATRELVIR\RITONAVIR
     Indication: Upper respiratory tract infection
     Dosage: OTHER QUANTITY : 3 TAB;?FREQUENCY : TWICE A DAY;?
     Route: 048
     Dates: start: 20220412, end: 20220417

REACTIONS (2)
  - Headache [None]
  - Dysgeusia [None]

NARRATIVE: CASE EVENT DATE: 20220414
